FAERS Safety Report 9100705 (Version 1)
Quarter: 2013Q1

REPORT INFORMATION
  Report Type: Spontaneous
  Country: EC (occurrence: EC)
  Receive Date: 20130214
  Receipt Date: 20130214
  Transmission Date: 20140127
  Serious: Yes (Hospitalization)
  Sender: FDA-Public Use
  Company Number: PHHY2013EC014252

PATIENT
  Sex: Female

DRUGS (3)
  1. EXFORGE HCT [Suspect]
     Dosage: 1 DF (160 MG VALS/ 5 MG AMLO/ 12.5 MG HCTZ), UNK
     Dates: start: 201201, end: 20130119
  2. DIOVAN [Suspect]
     Dosage: 160 MG, UNK
     Dates: start: 201201, end: 20130119
  3. AMLODIPINE [Concomitant]
     Dosage: UNK UKN, UNK

REACTIONS (2)
  - Lung disorder [Unknown]
  - Influenza [Unknown]
